FAERS Safety Report 15608266 (Version 4)
Quarter: 2019Q4

REPORT INFORMATION
  Report Type: Report from Study
  Country: CN (occurrence: CN)
  Receive Date: 20181112
  Receipt Date: 20191216
  Transmission Date: 20200122
  Serious: Yes (Death, Life-Threatening, Hospitalization)
  Sender: FDA-Public Use
  Company Number: CN-ASTRAZENECA-2018SF42958

PATIENT
  Age: 23343 Day
  Sex: Male

DRUGS (8)
  1. ETOPOSIDE. [Suspect]
     Active Substance: ETOPOSIDE
     Indication: SMALL CELL LUNG CANCER
     Dosage: 155.0MG/M2 ONCE/SINGLE ADMINISTRATION
     Route: 065
     Dates: start: 20181017, end: 20181017
  2. CODEINE CARBONATE [Concomitant]
     Indication: SMALL CELL LUNG CANCER
     Dosage: 30.0MG ONCE/SINGLE ADMINISTRATION
     Route: 048
     Dates: start: 20181021, end: 20181021
  3. ETOPOSIDE. [Suspect]
     Active Substance: ETOPOSIDE
     Indication: SMALL CELL LUNG CANCER
     Dosage: 155.0MG/M2 ONCE/SINGLE ADMINISTRATION
     Route: 065
     Dates: start: 20181016, end: 20181016
  4. ETOPOSIDE. [Suspect]
     Active Substance: ETOPOSIDE
     Indication: SMALL CELL LUNG CANCER
     Dosage: 155.0MG/M2 ONCE/SINGLE ADMINISTRATION
     Route: 065
     Dates: start: 20181018, end: 20181018
  5. LANSOPRAZOLE. [Concomitant]
     Active Substance: LANSOPRAZOLE
     Indication: PREMEDICATION
     Route: 042
     Dates: start: 20181016, end: 20181022
  6. MAGNESIUM ISOGLYCYRRHIZINATE [Concomitant]
     Active Substance: MAGNESIUM ISOGLYCYRRHIZINATE
     Indication: PROPHYLAXIS
     Route: 042
     Dates: start: 20181016, end: 20181022
  7. DURVALUMAB. [Suspect]
     Active Substance: DURVALUMAB
     Indication: SMALL CELL LUNG CANCER
     Dosage: 1500.0MG ONCE/SINGLE ADMINISTRATION
     Route: 042
     Dates: start: 20181016, end: 20181016
  8. CISPLATIN. [Suspect]
     Active Substance: CISPLATIN
     Indication: SMALL CELL LUNG CANCER
     Dosage: 115.0MG/M2 ONCE/SINGLE ADMINISTRATION
     Route: 065
     Dates: start: 20181016, end: 20181016

REACTIONS (2)
  - Bone marrow failure [Not Recovered/Not Resolved]
  - Pneumonia [Fatal]

NARRATIVE: CASE EVENT DATE: 20181027
